FAERS Safety Report 8716407 (Version 2)
Quarter: 2013Q4

REPORT INFORMATION
  Report Type: Spontaneous
  Country: US (occurrence: US)
  Receive Date: 20120810
  Receipt Date: 20131101
  Transmission Date: 20140711
  Serious: No
  Sender: FDA-Public Use
  Company Number: US-009507513-1207USA010058

PATIENT
  Age: 61 Year
  Sex: Male
  Weight: 185 kg

DRUGS (3)
  1. PEG-INTRON [Suspect]
     Dosage: 120 MICROGRAM, QW
     Route: 058
  2. REBETOL [Suspect]
     Dosage: 200 MG, UNK
  3. MK-0521 [Concomitant]
     Dosage: 20 MG, UNK

REACTIONS (3)
  - Platelet count decreased [Unknown]
  - Anaemia [Unknown]
  - Fatigue [Unknown]
